FAERS Safety Report 9228266 (Version 1)
Quarter: 2013Q2

REPORT INFORMATION
  Report Type: Spontaneous
  Country: US (occurrence: None)
  Receive Date: 20130411
  Receipt Date: 20130411
  Transmission Date: 20140414
  Serious: Yes (Disabling)
  Sender: FDA-Public Use
  Company Number: None

PATIENT
  Age: 65 Year
  Sex: Male
  Weight: 68.04 kg

DRUGS (1)
  1. MONTELUKAST [Suspect]
     Indication: ASTHMA
     Dosage: 10 MG  1 PER DAY  PO
     Route: 048
     Dates: start: 20121115, end: 20130404

REACTIONS (3)
  - Asthma [None]
  - Malaise [None]
  - Product substitution issue [None]
